FAERS Safety Report 8205882-3 (Version None)
Quarter: 2012Q1

REPORT INFORMATION
  Report Type: 
  Country: None (occurrence: None)
  Receive Date: 20120313
  Receipt Date: 20120305
  Transmission Date: 20120608
  Serious: Yes (Hospitalization)
  Sender: FDA-Public Use
  Company Number: PHHY2012AU019690

PATIENT
  Age: 50 Year
  Sex: Male

DRUGS (7)
  1. ZOLPIDEM [Suspect]
     Indication: EMOTIONAL DISTRESS
     Dosage: UNK UKN, UNK
  2. VENLAFAXINE [Suspect]
     Indication: EMOTIONAL DISTRESS
     Dosage: 300 MG, QD
  3. AMITRIPTYLINE HCL [Suspect]
     Indication: EMOTIONAL DISTRESS
     Dosage: UNK UKN, UNK
  4. ZOPICLONE [Suspect]
     Indication: EMOTIONAL DISTRESS
     Dosage: UNK UKN, UNK
  5. FLUOXETINE HCL [Suspect]
     Indication: EMOTIONAL DISTRESS
     Dosage: UNK UKN, UNK
  6. DIAZEPAM [Suspect]
     Indication: EMOTIONAL DISTRESS
     Dosage: UNK UKN, UNK
  7. METOCLOPRAMIDE [Suspect]
     Indication: EMOTIONAL DISTRESS
     Dosage: UNK UKN, UNK

REACTIONS (1)
  - AKATHISIA [None]
